FAERS Safety Report 9720104 (Version 1)
Quarter: 2013Q4

REPORT INFORMATION
  Report Type: Spontaneous
  Country: CN (occurrence: CN)
  Receive Date: 20131128
  Receipt Date: 20131128
  Transmission Date: 20140711
  Serious: Yes (Death)
  Sender: FDA-Public Use
  Company Number: CN-BRISTOL-MYERS SQUIBB COMPANY-19842616

PATIENT
  Sex: 0

DRUGS (1)
  1. BARACLUDE [Suspect]
     Dosage: 1TAB
     Route: 048
     Dates: start: 20131120, end: 20131120

REACTIONS (1)
  - Death [Fatal]
